FAERS Safety Report 4451080-9 (Version None)
Quarter: 2004Q3

REPORT INFORMATION
  Report Type: 
  Country: None (occurrence: None)
  Receive Date: 20040913
  Receipt Date: 20040616
  Transmission Date: 20050211
  Serious: No
  Sender: FDA-Public Use
  Company Number: 2004-BP-04781BP(0)

PATIENT
  Age: 86 Year
  Sex: Female

DRUGS (14)
  1. SPIRIVA [Suspect]
     Indication: CHRONIC OBSTRUCTIVE AIRWAYS DISEASE
     Dosage: 18 MCG (18 MCG,1 INHALATION OD), IH
     Dates: start: 20040601, end: 20040615
  2. PROVENTIL-HFA [Concomitant]
  3. ADVAIR (SERETIDE MITE) [Concomitant]
  4. THEO-24 (THEOPHYLLINE) [Concomitant]
  5. SNIGULAIR [Concomitant]
  6. ZYLOPRIM [Concomitant]
  7. PREMARIN [Concomitant]
  8. LOZOL [Concomitant]
  9. VIOXX [Concomitant]
  10. ATACAND [Concomitant]
  11. ACETYLSALICYLIC ACID SRT [Concomitant]
  12. LANOXIN [Concomitant]
  13. VERAPAMIL [Concomitant]
  14. AMBIEN [Concomitant]

REACTIONS (2)
  - CHEST DISCOMFORT [None]
  - DYSPNOEA [None]
